FAERS Safety Report 6739498-2 (Version None)
Quarter: 2010Q2

REPORT INFORMATION
  Report Type: 
  Country: None (occurrence: None)
  Receive Date: 20100521
  Receipt Date: 20100510
  Transmission Date: 20101027
  Serious: Yes (Other)
  Sender: FDA-Public Use
  Company Number: 232364J10USA

PATIENT
  Age: 58 Year
  Sex: Female

DRUGS (6)
  1. REBIF [Suspect]
     Indication: MULTIPLE SCLEROSIS
     Dosage: 44 MCG, 3 IN 1 WK, SUBCUTANEOUS
     Route: 058
     Dates: start: 20080910, end: 20090901
  2. IBUPROFEN [Suspect]
     Dates: end: 20090901
  3. MACRODANTIN [Suspect]
     Indication: CYSTITIS
     Dates: end: 20090901
  4. PROZAC [Concomitant]
  5. NEURONTIN [Concomitant]
  6. ATENOLOL [Concomitant]

REACTIONS (4)
  - BLOOD POTASSIUM DECREASED [None]
  - CYSTITIS [None]
  - RENAL FAILURE [None]
  - WEIGHT DECREASED [None]
